FAERS Safety Report 5726905-7 (Version None)
Quarter: 2008Q2

REPORT INFORMATION
  Report Type: 
  Country: None (occurrence: None)
  Receive Date: 20080502
  Receipt Date: 20080424
  Transmission Date: 20081010
  Serious: Yes (Other)
  Sender: FDA-Public Use
  Company Number: JP-PFIZER INC-2008036398

PATIENT
  Age: 75 Year
  Sex: Female

DRUGS (1)
  1. CABASER [Suspect]
     Dosage: DAILY DOSE:2MG
     Route: 048

REACTIONS (1)
  - EYELID PTOSIS [None]
